FAERS Safety Report 9898583 (Version 2)
Quarter: 2014Q1

REPORT INFORMATION
  Report Type: Spontaneous
  Country: US (occurrence: US)
  Receive Date: 20140214
  Receipt Date: 20140214
  Transmission Date: 20141002
  Serious: No
  Sender: FDA-Public Use
  Company Number: US-GILEAD-2011-0042249

PATIENT
  Sex: Female

DRUGS (2)
  1. LETAIRIS [Suspect]
     Indication: PULMONARY HYPERTENSION
     Route: 048
     Dates: start: 20110124
  2. LETAIRIS [Suspect]
     Indication: DRUG ABUSE

REACTIONS (4)
  - Oxygen saturation decreased [Unknown]
  - Pulse abnormal [Unknown]
  - Hypotension [Unknown]
  - Dizziness [Unknown]
